FAERS Safety Report 4888889-3 (Version None)
Quarter: 2005Q4

REPORT INFORMATION
  Report Type: 
  Country: None (occurrence: None)
  Receive Date: 20051216
  Receipt Date: 20050714
  Transmission Date: 20060501
  Serious: No
  Sender: FDA-Public Use
  Company Number: USA0507102793

PATIENT
  Age: 80 Year
  Sex: Male

DRUGS (7)
  1. CIALIS [Suspect]
     Dosage: 20 MG
  2. LISINOPRIL [Concomitant]
  3. METOPROLOL [Concomitant]
  4. TRAZODONE HCL [Concomitant]
  5. COUMADIN [Concomitant]
  6. AMARYL [Concomitant]
  7. AMERIAZOL [Concomitant]

REACTIONS (2)
  - BACK PAIN [None]
  - DRUG INEFFECTIVE [None]
